FAERS Safety Report 15308432 (Version 1)
Quarter: 2018Q3

REPORT INFORMATION
  Report Type: Spontaneous
  Country: US (occurrence: US)
  Receive Date: 20180822
  Receipt Date: 20180822
  Transmission Date: 20181010
  Serious: Yes (Hospitalization)
  Sender: FDA-Public Use
  Company Number: US-AMGEN INC.-USASP2018115428

PATIENT
  Age: 59 Year
  Sex: Female

DRUGS (1)
  1. AIMOVIG [Suspect]
     Active Substance: ERENUMAB-AOOE
     Indication: MIGRAINE PROPHYLAXIS
     Dosage: 140 MG, UNK
     Route: 065
     Dates: start: 20180813

REACTIONS (17)
  - Dyspnoea [Unknown]
  - Injection site pain [Unknown]
  - Back pain [Unknown]
  - Headache [Unknown]
  - Chills [Unknown]
  - Blood potassium decreased [Not Recovered/Not Resolved]
  - Hepatic enzyme abnormal [Not Recovered/Not Resolved]
  - Malaise [Unknown]
  - Chest pain [Unknown]
  - Pain in extremity [Unknown]
  - Abdominal pain upper [Unknown]
  - Pyrexia [Unknown]
  - Hyperhidrosis [Unknown]
  - White blood cell count decreased [Not Recovered/Not Resolved]
  - Hypotension [Not Recovered/Not Resolved]
  - Paraesthesia [Unknown]
  - Pain [Unknown]

NARRATIVE: CASE EVENT DATE: 201808
